FAERS Safety Report 8427252-5 (Version None)
Quarter: 2012Q2

REPORT INFORMATION
  Report Type: 
  Country: None (occurrence: None)
  Receive Date: 20120611
  Receipt Date: 20120606
  Transmission Date: 20120825
  Serious: Yes (Death, Hospitalization)
  Sender: FDA-Public Use
  Company Number: US-GLAXOSMITHKLINE-A0969136A

PATIENT
  Age: 53 Year
  Sex: Female
  Weight: 72.7 kg

DRUGS (8)
  1. PREMARIN [Concomitant]
  2. COMBIVENT [Concomitant]
  3. ADVAIR DISKUS 100/50 [Suspect]
     Indication: CHRONIC OBSTRUCTIVE PULMONARY DISEASE
     Dosage: 1PUFF TWICE PER DAY
     Route: 055
     Dates: start: 20031108, end: 20090401
  4. XANAX [Concomitant]
  5. LYRICA [Concomitant]
  6. AMITRIPTLINE HYDROCHLORIDE TAB [Concomitant]
  7. INDERAL [Concomitant]
  8. LORTAB [Concomitant]

REACTIONS (5)
  - STATUS EPILEPTICUS [None]
  - METABOLIC ACIDOSIS [None]
  - HYPOXIC-ISCHAEMIC ENCEPHALOPATHY [None]
  - ACUTE RESPIRATORY FAILURE [None]
  - CARDIO-RESPIRATORY ARREST [None]
